FAERS Safety Report 14960030 (Version 1)
Quarter: 2018Q2

REPORT INFORMATION
  Report Type: Spontaneous
  Country: US (occurrence: US)
  Receive Date: 20180531
  Receipt Date: 20180531
  Transmission Date: 20180711
  Serious: No
  Sender: FDA-Public Use
  Company Number: US-BIOMARINAP-US-2018-118369

PATIENT
  Age: 34 Year
  Sex: Female
  Weight: 24.5 kg

DRUGS (1)
  1. VIMIZIM [Suspect]
     Active Substance: ELOSULFASE ALFA
     Indication: PRODUCT USED FOR UNKNOWN INDICATION
     Dosage: UNK, QW
     Route: 065
     Dates: start: 20140502

REACTIONS (2)
  - Cataract [Unknown]
  - Visual impairment [Unknown]

NARRATIVE: CASE EVENT DATE: 20180427
